FAERS Safety Report 6859823-1 (Version None)
Quarter: 2010Q3

REPORT INFORMATION
  Report Type: 
  Country: None (occurrence: None)
  Receive Date: 20100719
  Receipt Date: 20100719
  Transmission Date: 20110219
  Serious: Yes (Life-Threatening, Hospitalization, Disabling, Other)
  Sender: FDA-Public Use
  Company Number: None

PATIENT
  Age: 25 Year
  Sex: Male
  Weight: 86.1834 kg

DRUGS (2)
  1. SEROQUEL [Suspect]
     Indication: DEPRESSION
     Dosage: 400 MG ONCE-A-DAY ORALLY
     Route: 048
     Dates: start: 20040801, end: 20050101
  2. MIRTAZAPINE [Suspect]
     Indication: ANXIETY
     Dosage: 30 MG ONCE-A-DAY ORALLY
     Route: 048
     Dates: start: 20040801, end: 20050101

REACTIONS (11)
  - ABNORMAL BEHAVIOUR [None]
  - AGGRESSION [None]
  - CEREBROVASCULAR ACCIDENT [None]
  - HEART RATE IRREGULAR [None]
  - HOSTILITY [None]
  - HYPERTENSION [None]
  - IMPULSIVE BEHAVIOUR [None]
  - INJURY [None]
  - JUDGEMENT IMPAIRED [None]
  - MENTAL IMPAIRMENT [None]
  - SUICIDAL BEHAVIOUR [None]
